FAERS Safety Report 20232823 (Version 1)
Quarter: 2021Q4

REPORT INFORMATION
  Report Type: Spontaneous
  Country: US (occurrence: None)
  Receive Date: 20211223
  Receipt Date: 20211223
  Transmission Date: 20220303
  Serious: Yes (Death)
  Sender: FDA-Public Use
  Company Number: None

PATIENT
  Age: 79 Year
  Sex: Male

DRUGS (1)
  1. ZOLADEX [Suspect]
     Active Substance: GOSERELIN ACETATE
     Indication: Prostate cancer
     Dosage: INJECT UNDER THE SKIN (SUBCUTANIOUS INJECTION) EVERY 90 DAYS
     Route: 058
     Dates: start: 20201230

REACTIONS (1)
  - Death [None]

NARRATIVE: CASE EVENT DATE: 20211221
